FAERS Safety Report 6836246-2 (Version None)
Quarter: 2010Q3

REPORT INFORMATION
  Report Type: 
  Country: None (occurrence: None)
  Receive Date: 20100713
  Receipt Date: 20100702
  Transmission Date: 20110219
  Serious: Yes (Hospitalization)
  Sender: FDA-Public Use
  Company Number: DE-GILEAD-E2B_00000774

PATIENT
  Sex: Female

DRUGS (11)
  1. AMBRISENTAN [Suspect]
     Route: 065
  2. REVATIO [Concomitant]
     Route: 065
     Dates: start: 20070601
  3. VIANI FORTE [Concomitant]
     Route: 065
  4. RAMIPRIL [Concomitant]
     Dosage: 5MG PER DAY
     Route: 065
  5. LASIX [Concomitant]
     Dosage: 40MG FOUR TIMES PER DAY
     Route: 065
  6. POTASSIUM CITRATE [Concomitant]
     Route: 065
  7. TARGIN [Concomitant]
     Route: 065
  8. NOVALGIN [Concomitant]
     Route: 065
  9. BISOPROLOL [Concomitant]
     Dosage: 50MG TWICE PER DAY
     Route: 065
  10. XIPAMIDE [Concomitant]
     Dosage: 10MG PER DAY
     Route: 065
  11. SITAXSENTAN [Concomitant]
     Indication: PULMONARY ARTERIAL HYPERTENSION
     Dosage: 100MG PER DAY
     Route: 048
     Dates: start: 20070201, end: 20090707

REACTIONS (3)
  - DRUG INTOLERANCE [None]
  - DYSPNOEA [None]
  - OEDEMA [None]
